FAERS Safety Report 5610814-8 (Version None)
Quarter: 2008Q1

REPORT INFORMATION
  Report Type: 
  Country: None (occurrence: None)
  Receive Date: 20080111
  Receipt Date: 20070720
  Transmission Date: 20080703
  Serious: Yes (Other)
  Sender: FDA-Public Use
  Company Number: HQWYE208917JUL04

PATIENT
  Age: 57 Year
  Sex: Female
  Weight: 876.22 kg

DRUGS (10)
  1. PREMPRO [Suspect]
     Indication: MENOPAUSE
     Dosage: 0.625/2.5MG DAILY, ORAL
     Route: 048
     Dates: start: 19950616, end: 20020501
  2. ASPIRIN [Concomitant]
  3. LOPRESSOR [Concomitant]
  4. LIPITOR [Concomitant]
  5. MAXZIDE [Concomitant]
  6. CAPOTEN [Concomitant]
  7. XANAX [Concomitant]
  8. AVAPRO [Concomitant]
  9. NEXIUM [Concomitant]
  10. XALATAN [Concomitant]

REACTIONS (1)
  - BREAST CANCER [None]
